FAERS Safety Report 6857575-2 (Version None)
Quarter: 2010Q3

REPORT INFORMATION
  Report Type: 
  Country: None (occurrence: None)
  Receive Date: 20100719
  Receipt Date: 20080127
  Transmission Date: 20110219
  Serious: No
  Sender: FDA-Public Use
  Company Number: US-PFIZER INC-2008008570

PATIENT
  Sex: Female
  Weight: 75 kg

DRUGS (9)
  1. CHANTIX [Suspect]
     Indication: SMOKING CESSATION THERAPY
     Dates: start: 20071101
  2. XANAX [Concomitant]
  3. CYMBALTA [Concomitant]
  4. PROTONIX [Concomitant]
  5. PROVIGIL [Concomitant]
  6. OXYCONTIN [Concomitant]
  7. SOMA [Concomitant]
  8. LORTAB [Concomitant]
  9. ANTIMIGRAINE PREPARATIONS [Concomitant]

REACTIONS (6)
  - DRUG DOSE OMISSION [None]
  - HEADACHE [None]
  - NAUSEA [None]
  - PALPITATIONS [None]
  - TOBACCO USER [None]
  - WEIGHT DECREASED [None]
